FAERS Safety Report 4657468-5 (Version None)
Quarter: 2005Q2

REPORT INFORMATION
  Report Type: 
  Country: None (occurrence: None)
  Receive Date: 20050509
  Receipt Date: 20050509
  Transmission Date: 20051028
  Serious: Yes (Hospitalization)
  Sender: FDA-Public Use
  Company Number: None

PATIENT
  Age: 56 Year
  Sex: Male
  Weight: 92 kg

DRUGS (11)
  1. ALEMTUZUMAB 30 MG BERLEX [Suspect]
  2. CELLCEPT [Concomitant]
  3. TACROLIMUS [Concomitant]
  4. THYMOGLOBULIN [Concomitant]
  5. ATENOLOL [Concomitant]
  6. VALCYTE [Concomitant]
  7. ASPIRIN [Concomitant]
  8. BACTRIM [Concomitant]
  9. NOVALOG [Concomitant]
  10. LANTUS [Concomitant]
  11. PREDNISONE [Concomitant]

REACTIONS (1)
  - KIDNEY TRANSPLANT REJECTION [None]
